FAERS Safety Report 5038002-7 (Version None)
Quarter: 2006Q2

REPORT INFORMATION
  Report Type: 
  Country: None (occurrence: None)
  Receive Date: 20060622
  Receipt Date: 20060608
  Transmission Date: 20061013
  Serious: Yes (Other)
  Sender: FDA-Public Use
  Company Number: 2006053699

PATIENT
  Age: 63 Year
  Sex: Male
  Weight: 60.5 kg

DRUGS (5)
  1. LIPITOR [Suspect]
     Indication: HYPERLIPIDAEMIA
     Dosage: DAILY, ORAL
     Route: 048
     Dates: start: 20051024, end: 20060518
  2. URALYT (ARNICA EXTRACT, CONVALLARIA GLYCOSIDES, ECHINACEA ANGUSTIFOLIA [Concomitant]
  3. ALLORINE               (ALLOPURINOL) [Concomitant]
  4. BENZBROMARONE                       (BENZBROMARONE) [Concomitant]
  5. CONIEL               (BENIDIPINE HYDROCHLORIDE) [Concomitant]

REACTIONS (2)
  - BLOOD URIC ACID INCREASED [None]
  - TREATMENT NONCOMPLIANCE [None]
